FAERS Safety Report 5013490-0 (Version None)
Quarter: 2006Q2

REPORT INFORMATION
  Report Type: 
  Country: None (occurrence: None)
  Receive Date: 20060530
  Receipt Date: 20060525
  Transmission Date: 20061013
  Serious: Yes (Other)
  Sender: FDA-Public Use
  Company Number: AU-SANOFI-SYNTHELABO-A01200603942

PATIENT
  Age: 75 Year
  Sex: Female

DRUGS (1)
  1. ELOXATIN [Suspect]
     Dosage: UNK
     Route: 042

REACTIONS (3)
  - CIRCULATORY COLLAPSE [None]
  - DYSPNOEA [None]
  - LARYNGOSPASM [None]
